FAERS Safety Report 18557465 (Version 2)
Quarter: 2021Q1

REPORT INFORMATION
  Report Type: Spontaneous
  Country: US (occurrence: US)
  Receive Date: 20201130
  Receipt Date: 20210122
  Transmission Date: 20210419
  Serious: Yes (Hospitalization)
  Sender: FDA-Public Use
  Company Number: US-ASTELLAS-2020US035034

PATIENT
  Sex: Male

DRUGS (1)
  1. MYRBETRIQ [Suspect]
     Active Substance: MIRABEGRON
     Indication: POLLAKIURIA
     Route: 048
     Dates: start: 20200622, end: 20200623

REACTIONS (10)
  - Fatigue [Unknown]
  - Dizziness [Unknown]
  - Dysuria [Unknown]
  - Heart rate abnormal [Unknown]
  - Illness [Unknown]
  - Vision blurred [Unknown]
  - Abdominal discomfort [Unknown]
  - Hypertension [Unknown]
  - Musculoskeletal discomfort [Unknown]
  - Micturition urgency [Unknown]

NARRATIVE: CASE EVENT DATE: 202006
